FAERS Safety Report 22223252 (Version 2)
Quarter: 2023Q2

REPORT INFORMATION
  Report Type: Spontaneous
  Country: BE (occurrence: BE)
  Receive Date: 20230418
  Receipt Date: 20230427
  Transmission Date: 20230721
  Serious: No
  Sender: FDA-Public Use
  Company Number: BE-PFIZER INC-PV202300065468

PATIENT
  Sex: Male

DRUGS (1)
  1. SOMATROPIN [Suspect]
     Active Substance: SOMATROPIN
     Dosage: GENOTONORM 5.3 GQ 5 PFP

REACTIONS (3)
  - Product preparation error [Unknown]
  - Device issue [Unknown]
  - Liquid product physical issue [Unknown]
